FAERS Safety Report 23456801 (Version 4)
Quarter: 2025Q1

REPORT INFORMATION
  Report Type: Spontaneous
  Country: US (occurrence: US)
  Receive Date: 20240130
  Receipt Date: 20250305
  Transmission Date: 20250409
  Serious: Yes (Hospitalization, Other)
  Sender: PFIZER
  Company Number: US-PFIZER INC-PV202300200888

PATIENT
  Age: 71 Year
  Sex: Male
  Weight: 80.29 kg

DRUGS (10)
  1. XELJANZ [Suspect]
     Active Substance: TOFACITINIB CITRATE
     Indication: Rheumatoid arthritis
  2. ATORVASTATIN [Concomitant]
     Active Substance: ATORVASTATIN
  3. METHOCARBAMOL [Concomitant]
     Active Substance: METHOCARBAMOL
  4. CLOPIDOGREL [Concomitant]
     Active Substance: CLOPIDOGREL BISULFATE
  5. BUPROPION [Concomitant]
     Active Substance: BUPROPION
  6. FINASTERIDE [Concomitant]
     Active Substance: FINASTERIDE
  7. PROPRANOLOL [Concomitant]
     Active Substance: PROPRANOLOL HYDROCHLORIDE
  8. NORCO [Concomitant]
     Active Substance: ACETAMINOPHEN\HYDROCODONE BITARTRATE
  9. MORPHINE [Concomitant]
     Active Substance: MORPHINE
  10. LISINOPRIL AND HYDROCHLOROTHIAZIDE [Concomitant]
     Active Substance: HYDROCHLOROTHIAZIDE\LISINOPRIL

REACTIONS (4)
  - Thrombosis [Unknown]
  - Illness [Not Recovered/Not Resolved]
  - Pain [Unknown]
  - Back disorder [Unknown]
